FAERS Safety Report 6270745-X (Version None)
Quarter: 2009Q3

REPORT INFORMATION
  Report Type: 
  Country: None (occurrence: None)
  Receive Date: 20090716
  Receipt Date: 20090716
  Transmission Date: 20100115
  Serious: Yes (Other)
  Sender: FDA-Public Use
  Company Number: US-PFIZER INC-2009224540

PATIENT
  Sex: Female
  Weight: 80.272 kg

DRUGS (1)
  1. GEODON [Suspect]
     Indication: BIPOLAR DISORDER
     Dates: start: 20090526

REACTIONS (3)
  - FEELING DRUNK [None]
  - LOSS OF CONSCIOUSNESS [None]
  - SOMNOLENCE [None]
